FAERS Safety Report 10192698 (Version 6)
Quarter: 2016Q2

REPORT INFORMATION
  Report Type: Report from Study
  Country: JP (occurrence: JP)
  Receive Date: 20140523
  Receipt Date: 20160415
  Transmission Date: 20160815
  Serious: Yes (Hospitalization, Other)
  Sender: FDA-Public Use
  Company Number: JP-TAKEDA-2014TUS004071

PATIENT
  Age: 53 Year
  Sex: Female
  Weight: 48 kg

DRUGS (53)
  1. ALDACTONE A [Suspect]
     Active Substance: SPIRONOLACTONE
     Dosage: 12.5 MG, QD
     Route: 048
     Dates: start: 20130822, end: 20130911
  2. DIART [Concomitant]
     Active Substance: AZOSEMIDE
     Dosage: 15 MG, QD
     Route: 048
     Dates: start: 20130912, end: 20151015
  3. AMLODIN OD [Concomitant]
     Active Substance: AMLODIPINE BESYLATE
     Indication: HYPERTENSION
     Dosage: 2.5 MG, QD
     Route: 048
     Dates: start: 20131120, end: 20150211
  4. LIVACT [Concomitant]
     Active Substance: AMINO ACIDS
     Indication: HEPATIC CONGESTION
     Dosage: 4.15 G, TID
     Route: 048
     Dates: start: 20130121, end: 20140429
  5. PROMAC [Concomitant]
     Active Substance: NITROFURANTOIN
     Indication: DYSGEUSIA
     Dosage: UNK
     Route: 048
     Dates: start: 201406, end: 20150323
  6. AMLODIN OD [Concomitant]
     Active Substance: AMLODIPINE BESYLATE
     Dosage: 5 MG, BID
     Route: 048
     Dates: start: 20151001
  7. CALONAL [Concomitant]
     Active Substance: ACETAMINOPHEN
     Indication: DENTAL CARIES
     Dosage: UNK
     Route: 048
     Dates: start: 20140925, end: 20140927
  8. MECOBALAMIN [Concomitant]
     Active Substance: METHYLCOBALAMIN
     Indication: THALAMUS HAEMORRHAGE
     Dosage: 500 ?G, TID
     Route: 048
     Dates: start: 20140430, end: 20140522
  9. FEBUXOSTAT. [Suspect]
     Active Substance: FEBUXOSTAT
     Indication: HYPERURICAEMIA
     Dosage: 10 MG, QD
     Route: 048
     Dates: start: 20130213, end: 20131107
  10. ALLEGRA [Concomitant]
     Active Substance: FEXOFENADINE HYDROCHLORIDE
     Indication: ECZEMA ASTEATOTIC
     Dosage: 60 MG, BID
     Route: 048
     Dates: start: 20130213, end: 20130219
  11. SAMSCA [Concomitant]
     Active Substance: TOLVAPTAN
     Indication: CARDIAC FAILURE
     Dosage: 15 MG, QD
     Route: 048
     Dates: start: 20130121, end: 20130306
  12. SAMSCA [Concomitant]
     Active Substance: TOLVAPTAN
     Dosage: 7.5 MG, QD
     Route: 048
     Dates: start: 20130307, end: 20130417
  13. HANP [Concomitant]
     Active Substance: CARPERITIDE
     Indication: CARDIAC FAILURE
     Dosage: 3000 ?G, QD
     Route: 041
     Dates: start: 20131101, end: 20131114
  14. ANTEBATE:OINTMENT [Concomitant]
     Indication: HAND DERMATITIS
     Dosage: UNK
     Route: 061
     Dates: start: 20131105, end: 20131205
  15. CONCENTRATED RED CELLS [Concomitant]
     Active Substance: HUMAN RED BLOOD CELL
     Indication: ANAEMIA
     Dosage: 4 IU, QD
     Route: 041
     Dates: start: 20130318, end: 20130318
  16. PURSENNID [Concomitant]
     Active Substance: SENNOSIDES A AND B
     Indication: CONSTIPATION
     Dosage: 24 MG, QD
     Route: 048
     Dates: start: 20140424, end: 20150401
  17. KALIMATE [Concomitant]
     Active Substance: CALCIUM POLYSTYRENE SULFONATE
     Dosage: 25 G, BID
     Route: 048
     Dates: start: 20140821
  18. FLOMOX [Concomitant]
     Active Substance: CEFCAPENE PIVOXIL HYDROCHLORIDE HYDRATE
     Indication: DENTAL CARIES
     Dosage: UNK
     Route: 048
     Dates: start: 20140925, end: 20140927
  19. CALONAL [Concomitant]
     Active Substance: ACETAMINOPHEN
     Dosage: UNK
     Route: 048
     Dates: start: 20141127, end: 20141202
  20. OLOPATADINE HYDROCHLORIDE. [Concomitant]
     Active Substance: OLOPATADINE HYDROCHLORIDE
     Indication: ECZEMA
     Dosage: 5 MG, BID
     Route: 048
     Dates: start: 20140430, end: 20140522
  21. DEXAN VG [Concomitant]
     Indication: ECZEMA
     Dosage: UNK
     Route: 048
     Dates: start: 20140430, end: 20140522
  22. ALDACTONE A [Suspect]
     Active Substance: SPIRONOLACTONE
     Indication: CARDIAC FAILURE
     Dosage: 25 MG, QD
     Route: 048
     Dates: start: 20130307, end: 20130502
  23. ALLELOCK [Concomitant]
     Active Substance: OLOPATADINE HYDROCHLORIDE
     Indication: ECZEMA ASTEATOTIC
     Dosage: 5 MG, BID
     Route: 048
     Dates: start: 20130220, end: 20130328
  24. HIRUDOID [Concomitant]
     Active Substance: GLYCOSAMINOGLYCANS
     Dosage: UNK
     Route: 061
     Dates: start: 20131105, end: 20131205
  25. FOLIAMIN [Concomitant]
     Active Substance: FOLIC ACID
     Indication: ANAEMIA
     Dosage: 5 MG, TID
     Route: 048
     Dates: start: 20130121
  26. ARTIST [Concomitant]
     Active Substance: CARVEDILOL
     Indication: CARDIAC FAILURE
     Dosage: 2.5 MG, QD
     Route: 048
     Dates: start: 20130307, end: 20150603
  27. LASIX [Suspect]
     Active Substance: FUROSEMIDE
     Dosage: 40 MG, QD
     Route: 048
     Dates: start: 20130315, end: 20131128
  28. LASIX [Suspect]
     Active Substance: FUROSEMIDE
     Dosage: 20 MG, QD
     Route: 048
     Dates: start: 20131129, end: 20140108
  29. OLMETEC [Suspect]
     Active Substance: OLMESARTAN MEDOXOMIL
     Dosage: 20 MG, QD
     Route: 048
     Dates: start: 20130323
  30. LOCOID [Concomitant]
     Active Substance: HYDROCORTISONE BUTYRATE
     Indication: ECZEMA ASTEATOTIC
     Dosage: UNK, BID
     Route: 061
     Dates: start: 20130220, end: 20130226
  31. MYSER [Concomitant]
     Active Substance: DIFLUPREDNATE
     Indication: ECZEMA ASTEATOTIC
     Dosage: UNK, BID
     Route: 061
     Dates: start: 20130220, end: 20131104
  32. HIRUDOID [Concomitant]
     Active Substance: GLYCOSAMINOGLYCANS
     Indication: HAND DERMATITIS
     Dosage: UNK
     Route: 061
     Dates: start: 20130220, end: 20130226
  33. URSO [Concomitant]
     Active Substance: URSODIOL
     Indication: HEPATIC CONGESTION
     Dosage: 200 MG, TID
     Route: 048
     Dates: start: 20130121
  34. PROMAC [Concomitant]
     Active Substance: NITROFURANTOIN
     Indication: PROPHYLAXIS AGAINST GASTROINTESTINAL ULCER
     Dosage: 1 DF, BID
     Route: 048
     Dates: start: 20130223
  35. FERROMIA [Concomitant]
     Active Substance: FERROUS CITRATE
     Dosage: 50 MG, QD
     Route: 048
     Dates: start: 20140717, end: 20150930
  36. DIART [Concomitant]
     Active Substance: AZOSEMIDE
     Dosage: 15 MG, BID
     Route: 048
     Dates: start: 20151016
  37. DERMOVATE [Concomitant]
     Active Substance: CLOBETASOL
     Indication: HAND DERMATITIS
     Dosage: UNK
     Route: 061
     Dates: start: 20131112, end: 20140109
  38. FEBUXOSTAT. [Suspect]
     Active Substance: FEBUXOSTAT
     Dosage: 20 MG, QD
     Route: 048
     Dates: start: 20131108
  39. LASIX [Suspect]
     Active Substance: FUROSEMIDE
     Indication: CARDIAC FAILURE
     Dosage: 60 MG, QD
     Route: 048
     Dates: start: 20130121, end: 20130314
  40. AMLODIN OD [Concomitant]
     Active Substance: AMLODIPINE BESYLATE
     Dosage: 5 MG, QD
     Route: 048
     Dates: start: 20150212, end: 20150930
  41. ALDACTONE A [Suspect]
     Active Substance: SPIRONOLACTONE
     Dosage: 25 MG, QD
     Route: 048
     Dates: start: 20131108, end: 20140429
  42. GASTER [Concomitant]
     Active Substance: FAMOTIDINE
     Indication: PROPHYLAXIS AGAINST GASTROINTESTINAL ULCER
     Dosage: 20 MG, QD
     Route: 048
     Dates: start: 20130222
  43. ARTIST [Concomitant]
     Active Substance: CARVEDILOL
     Dosage: 2.5 MG, BID
     Route: 048
     Dates: start: 20150604
  44. KALIMATE [Concomitant]
     Active Substance: CALCIUM POLYSTYRENE SULFONATE
     Indication: HYPERKALAEMIA
     Dosage: 25 G, BID
     Route: 048
     Dates: start: 20140424, end: 20140618
  45. TRANSAMIN [Concomitant]
     Active Substance: TRANEXAMIC ACID
     Indication: DENTAL CARIES
     Dosage: UNK
     Route: 048
     Dates: start: 20140925, end: 20140927
  46. TOKISHAKUYAKUSAN [Concomitant]
     Active Substance: HERBALS
     Indication: DYSGEUSIA
     Dosage: UNK
     Route: 048
     Dates: start: 201406, end: 20150323
  47. OLMETEC [Suspect]
     Active Substance: OLMESARTAN MEDOXOMIL
     Indication: HYPERTENSION
     Dosage: 10 MG, QD
     Route: 048
     Dates: start: 20130303, end: 20130322
  48. ARGAMATE [Concomitant]
     Active Substance: CALCIUM POLYSTYRENE SULFONATE
     Indication: HYPERKALAEMIA
     Dosage: 25 G, BID
     Route: 048
     Dates: start: 20130418, end: 20130506
  49. FERROMIA [Concomitant]
     Active Substance: FERROUS CITRATE
     Indication: ANAEMIA
     Dosage: 50 MG, BID
     Route: 048
     Dates: start: 20130507, end: 20140109
  50. DIART [Concomitant]
     Active Substance: AZOSEMIDE
     Indication: CARDIAC FAILURE
     Dosage: 30 MG, QD
     Route: 048
     Dates: start: 20130822, end: 20130911
  51. POLARAMINE [Concomitant]
     Active Substance: DEXCHLORPHENIRAMINE MALEATE
     Indication: ECZEMA ASTEATOTIC
     Dosage: 2 MG, QD
     Route: 048
     Dates: start: 20131119, end: 20140429
  52. KALIMATE [Concomitant]
     Active Substance: CALCIUM POLYSTYRENE SULFONATE
     Dosage: 25 G, QD
     Route: 048
     Dates: start: 20140619, end: 20140820
  53. HEMOSTATICS [Concomitant]
     Indication: THALAMUS HAEMORRHAGE
     Dosage: UNK
     Route: 048
     Dates: start: 20140430, end: 20140522

REACTIONS (24)
  - IgA nephropathy [Not Recovered/Not Resolved]
  - Cardiac failure [Not Recovered/Not Resolved]
  - Dehydration [Recovered/Resolved]
  - Dehydration [Recovered/Resolved]
  - Hyperkalaemia [Recovered/Resolved]
  - Anaemia [Recovered/Resolved]
  - Dysgeusia [Unknown]
  - Anaemia [Not Recovered/Not Resolved]
  - Hyperkalaemia [Recovered/Resolved]
  - Renal impairment [Recovering/Resolving]
  - Hand dermatitis [Recovered/Resolved]
  - Pyrexia [Recovered/Resolved]
  - Thalamus haemorrhage [Recovered/Resolved with Sequelae]
  - Renal impairment [Recovering/Resolving]
  - Hypertension [Recovering/Resolving]
  - Aneurysm [Recovered/Resolved]
  - Cardiac failure [Recovering/Resolving]
  - Hepatic function abnormal [Recovering/Resolving]
  - Hyperkalaemia [Recovered/Resolved]
  - Anaemia [Recovering/Resolving]
  - Dental caries [Recovered/Resolved]
  - Hypertension [Recovering/Resolving]
  - Anaemia [Recovering/Resolving]
  - Hypertension [Recovering/Resolving]

NARRATIVE: CASE EVENT DATE: 20130310
